FAERS Safety Report 7747140-7 (Version None)
Quarter: 2011Q3

REPORT INFORMATION
  Report Type: 
  Country: None (occurrence: None)
  Receive Date: 20110913
  Receipt Date: 20110908
  Transmission Date: 20111222
  Serious: No
  Sender: FDA-Public Use
  Company Number: JP-ASTRAZENECA-2011SE37934

PATIENT
  Age: 29151 Day
  Sex: Male

DRUGS (1)
  1. MEROPENEM [Suspect]
     Indication: PYELONEPHRITIS
     Route: 042
     Dates: start: 20110611, end: 20110617

REACTIONS (1)
  - TUBULOINTERSTITIAL NEPHRITIS [None]
